FAERS Safety Report 24702564 (Version 1)
Quarter: 2024Q4

REPORT INFORMATION
  Report Type: Spontaneous
  Country: US (occurrence: None)
  Receive Date: 20241205
  Receipt Date: 20241205
  Transmission Date: 20250114
  Serious: Yes (Life-Threatening, Hospitalization, Disabling)
  Sender: Public
  Company Number: None

PATIENT
  Age: 71 Year
  Sex: Female
  Weight: 90 kg

DRUGS (21)
  1. OLUMIANT [Suspect]
     Active Substance: BARICITINIB
     Indication: Rheumatoid arthritis
     Dosage: OTHER QUANTITY : 1 TABLET(S);?FREQUENCY : DAILY;?
     Route: 048
     Dates: start: 20230501, end: 20240718
  2. LEVOTHYROXINE [Concomitant]
     Active Substance: LEVOTHYROXINE
  3. PLAQUENIL [Concomitant]
     Active Substance: HYDROXYCHLOROQUINE SULFATE
  4. macrobind [Concomitant]
  5. PREDNISONE [Concomitant]
     Active Substance: PREDNISONE
  6. XARELTO [Concomitant]
     Active Substance: RIVAROXABAN
  7. AMBIEN [Concomitant]
     Active Substance: ZOLPIDEM TARTRATE
  8. corcotrophin [Concomitant]
  9. GABAPENTIN [Concomitant]
     Active Substance: GABAPENTIN
  10. COLESTIPOL [Concomitant]
     Active Substance: COLESTIPOL
  11. PROZAC [Concomitant]
     Active Substance: FLUOXETINE HYDROCHLORIDE
  12. VITAMIN D [Concomitant]
     Active Substance: VITAMIN D NOS
  13. BUPROPION [Concomitant]
     Active Substance: BUPROPION
  14. NORCO [Suspect]
     Active Substance: ACETAMINOPHEN\HYDROCODONE BITARTRATE
  15. CYCLOBENZAPRINE [Concomitant]
     Active Substance: CYCLOBENZAPRINE
  16. al uteri^s inhaler [Concomitant]
  17. FLUTICASONE [Concomitant]
     Active Substance: FLUTICASONE
  18. VITAMINS [Concomitant]
     Active Substance: VITAMINS
  19. CALCIUM [Concomitant]
     Active Substance: CALCIUM
  20. FISH OIL [Concomitant]
     Active Substance: FISH OIL
  21. ALLEGRA [Concomitant]
     Active Substance: FEXOFENADINE HYDROCHLORIDE

REACTIONS (2)
  - Peripheral embolism [None]
  - Pulmonary embolism [None]

NARRATIVE: CASE EVENT DATE: 20240718
